FAERS Safety Report 4483939-0 (Version None)
Quarter: 2004Q4

REPORT INFORMATION
  Report Type: 
  Country: None (occurrence: None)
  Receive Date: 20041021
  Receipt Date: 20041013
  Transmission Date: 20050328
  Serious: Yes (Other)
  Sender: FDA-Public Use
  Company Number: 2004235364US

PATIENT

DRUGS (1)
  1. BEXTRA [Suspect]
     Indication: KNEE ARTHROPLASTY
     Dosage: 30 TO 40MG DAY OF SURGERY

REACTIONS (1)
  - HAEMORRHAGE [None]
